FAERS Safety Report 7262193-0 (Version None)
Quarter: 2011Q1

REPORT INFORMATION
  Report Type: 
  Country: None (occurrence: None)
  Receive Date: 20110130
  Receipt Date: 20101202
  Transmission Date: 20110831
  Serious: No
  Sender: FDA-Public Use
  Company Number: US-ABBOTT-10P-163-0689286-00

PATIENT
  Age: 50 Year
  Sex: Female

DRUGS (5)
  1. PROVENTIL [Concomitant]
     Indication: PRODUCT USED FOR UNKNOWN INDICATION
     Dates: start: 19950101
  2. PROZAC [Concomitant]
     Indication: DEPRESSION
  3. HUMIRA [Suspect]
     Indication: RHEUMATOID ARTHRITIS
     Dates: start: 20101202
  4. PROZAC [Concomitant]
     Indication: ANXIETY
  5. SYNTHROID [Concomitant]
     Indication: PRODUCT USED FOR UNKNOWN INDICATION
     Dates: start: 20050101

REACTIONS (10)
  - UNEVALUABLE EVENT [None]
  - DIZZINESS [None]
  - FATIGUE [None]
  - PARALYSIS [None]
  - FEELING HOT [None]
  - ERYTHEMA [None]
  - DRY MOUTH [None]
  - DYSPNOEA EXERTIONAL [None]
  - VOMITING [None]
  - OEDEMA PERIPHERAL [None]
